FAERS Safety Report 16818150 (Version 1)
Quarter: 2019Q3

REPORT INFORMATION
  Report Type: Spontaneous
  Country: US (occurrence: US)
  Receive Date: 20190917
  Receipt Date: 20190917
  Transmission Date: 20191005
  Serious: No
  Sender: FDA-Public Use
  Company Number: US-PERRIGO-19US003062

PATIENT
  Age: 53 Year
  Sex: Male
  Weight: 136.05 kg

DRUGS (3)
  1. ANTIHYPERTENSIVES [Concomitant]
     Active Substance: UNSPECIFIED INGREDIENT
     Dosage: UNK
     Route: 065
     Dates: start: 2017
  2. TESTOSTERONE. [Suspect]
     Active Substance: TESTOSTERONE
     Indication: BLOOD TESTOSTERONE DECREASED
     Dosage: 40.5 MG, QAM
     Route: 061
     Dates: start: 20190228, end: 20190302
  3. TESTOSTERONE. [Suspect]
     Active Substance: TESTOSTERONE
     Dosage: 40.5 MG, QAM
     Route: 061
     Dates: start: 20190304, end: 20190305

REACTIONS (6)
  - Heart rate increased [Recovering/Resolving]
  - Dyspnoea [Not Recovered/Not Resolved]
  - Feeling cold [Recovering/Resolving]
  - Hyperhidrosis [Recovered/Resolved]
  - Chest pain [Recovering/Resolving]
  - Dizziness [Recovering/Resolving]

NARRATIVE: CASE EVENT DATE: 20190301
